FAERS Safety Report 9365312 (Version 4)
Quarter: 2013Q3

REPORT INFORMATION
  Report Type: Spontaneous
  Country: JP (occurrence: JP)
  Receive Date: 20130625
  Receipt Date: 20130805
  Transmission Date: 20140515
  Serious: Yes (Life-Threatening, Other)
  Sender: FDA-Public Use
  Company Number: JP-B.I. PHARMACEUTICALS,INC./RIDGEFIELD-2013-BI-18096GD

PATIENT
  Age: 80 Year
  Sex: Female
  Weight: 38 kg

DRUGS (14)
  1. MICARDIS [Suspect]
     Indication: HYPERTENSION
     Dosage: 40 MG
     Route: 048
  2. SEVOFLURANE [Suspect]
     Indication: INDUCTION AND MAINTENANCE OF ANAESTHESIA
     Route: 065
     Dates: start: 20110517, end: 20110517
  3. PROPOFOL [Suspect]
     Route: 042
     Dates: start: 20110517, end: 20110517
  4. FENTANYL [Suspect]
     Dates: start: 20110517, end: 20110517
  5. NATRIX [Suspect]
     Indication: HYPERTENSION
     Dosage: 1 MG
     Route: 048
  6. DESYREL [Suspect]
     Indication: DEPRESSION
     Dosage: 25 MG
     Route: 048
  7. NITROUS OXIDE [Suspect]
     Indication: INDUCTION AND MAINTENANCE OF ANAESTHESIA
  8. OXYGEN [Suspect]
     Indication: INDUCTION AND MAINTENANCE OF ANAESTHESIA
  9. ARICEPT [Concomitant]
     Indication: DEMENTIA ALZHEIMER^S TYPE
     Dosage: 5 MG
     Route: 048
  10. MERCAZOLE [Concomitant]
     Indication: HYPERTHYROIDISM
     Dosage: 5 MG
     Route: 048
  11. EPHEDRIN [Concomitant]
     Route: 065
  12. ROCURONIUM BROMIDE [Concomitant]
     Route: 042
     Dates: start: 20110517, end: 20110517
  13. CITANEST-OCTAPRESSIN [Concomitant]
     Dates: start: 20110517, end: 20110517
  14. ORA [Concomitant]
     Dates: start: 20110517, end: 20110517

REACTIONS (3)
  - Gingival cancer [Recovered/Resolved]
  - Cardiovascular insufficiency [Recovered/Resolved]
  - Procedural hypotension [Recovered/Resolved]
